FAERS Safety Report 5131345-8 (Version None)
Quarter: 2006Q4

REPORT INFORMATION
  Report Type: 
  Country: None (occurrence: None)
  Receive Date: 20061016
  Receipt Date: 20061003
  Transmission Date: 20070319
  Serious: Yes (Other)
  Sender: FDA-Public Use
  Company Number: 2006121988

PATIENT
  Age: 66 Year
  Sex: Female
  Weight: 76.2043 kg

DRUGS (14)
  1. NEURONTIN [Suspect]
     Indication: NERVE INJURY
     Dosage: 900 MG (300 MG, 3 IN 1 D)
     Dates: start: 20060801, end: 20060901
  2. LYRICA [Suspect]
     Indication: NERVE INJURY
     Dosage: 50 MG, INTERVAL:     EVERY DAY
     Dates: start: 20060901
  3. ANALGESICS (ANALGESICS) [Suspect]
     Indication: PAIN
     Dates: end: 20060101
  4. ACETAMINOPHEN [Concomitant]
  5. TRILISATE (CHOLINE SALICYLATE, MAGNESIUM SALICYLATE) [Concomitant]
  6. MOBIC [Concomitant]
  7. CIPROFLOXACIN [Concomitant]
  8. ACYCLOVIR [Concomitant]
  9. HYDROCHLOROTHIAZIDE/TRIAMTERENE (HYDROCHLOROTHIAZIDE, TRIAMTERENE) [Concomitant]
  10. ASPIRIN [Concomitant]
  11. ALLOPURINOL [Concomitant]
  12. ZYRTEC [Concomitant]
  13. OXYCODONE HCL [Concomitant]
  14. VICODIN [Concomitant]

REACTIONS (28)
  - BALANCE DISORDER [None]
  - COGNITIVE DISORDER [None]
  - CONFUSIONAL STATE [None]
  - CONSTIPATION [None]
  - COORDINATION ABNORMAL [None]
  - CRYING [None]
  - DISORIENTATION [None]
  - DIZZINESS [None]
  - DRY MOUTH [None]
  - FATIGUE [None]
  - FEELING ABNORMAL [None]
  - GAIT DISTURBANCE [None]
  - GLOSSODYNIA [None]
  - IMPAIRED DRIVING ABILITY [None]
  - INCREASED APPETITE [None]
  - MEMORY IMPAIRMENT [None]
  - MOOD SWINGS [None]
  - MUSCULAR WEAKNESS [None]
  - NERVE INJURY [None]
  - OEDEMA PERIPHERAL [None]
  - PAIN [None]
  - PERFORMANCE STATUS DECREASED [None]
  - SOMNOLENCE [None]
  - SPEECH DISORDER [None]
  - TONGUE DRY [None]
  - TREMOR [None]
  - VISION BLURRED [None]
  - VISUAL ACUITY REDUCED [None]
